FAERS Safety Report 8824361 (Version 1)
Quarter: 2012Q4

REPORT INFORMATION
  Report Type: Report from Study
  Country: US (occurrence: US)
  Receive Date: 20121004
  Receipt Date: 20121004
  Transmission Date: 20130627
  Serious: Yes (Hospitalization)
  Sender: FDA-Public Use
  Company Number: US-MERCK-2009SP007530

PATIENT
  Age: 51 Year
  Sex: Female
  Weight: 85.5 kg

DRUGS (12)
  1. PEGINTERFERON ALFA-2B [Suspect]
     Indication: HEPATITIS C
     Dosage: 135 Microgram, UNK
     Route: 058
     Dates: start: 20090312, end: 20090403
  2. RIBAVIRIN [Suspect]
     Indication: HEPATITIS C
     Dosage: 1200 mg, UNK
     Route: 048
     Dates: start: 20090312, end: 20090403
  3. INFLIXIMAB [Suspect]
     Indication: HEPATITIS C
     Dosage: 434 mg, UNK
     Route: 042
     Dates: start: 20090312, end: 20090423
  4. ALEVE [Concomitant]
     Indication: MEDICAL OBSERVATION
     Dosage: 1-2
     Route: 048
     Dates: start: 20090312, end: 20090313
  5. HYDROCHLOROTHIAZIDE [Concomitant]
     Indication: MEDICAL OBSERVATION
     Dosage: 25 mg, QD
     Route: 048
     Dates: start: 2005
  6. VERAPAMIL [Concomitant]
     Indication: HYPERTENSION
     Dosage: 360 mg, QD
     Dates: start: 2005
  7. IMITREX (SUMATRIPTAN) [Concomitant]
     Indication: MEDICAL OBSERVATION
     Dosage: 50 mg, PRN
     Route: 048
     Dates: start: 2005
  8. PERIACTIN [Concomitant]
     Indication: PRURITUS
     Dosage: NIGHT TIME
     Route: 048
     Dates: start: 20090313
  9. COLACE [Concomitant]
     Indication: CONSTIPATION
     Dosage: 1 DF, QD
     Route: 048
     Dates: start: 20090318, end: 20090326
  10. MAGNESIUM HYDROXIDE [Concomitant]
     Indication: CONSTIPATION
     Dosage: 2 TBSP
     Route: 048
     Dates: start: 20090326
  11. LISINOPRIL [Concomitant]
  12. MAGNESIUM CITRATE [Concomitant]
     Indication: CONSTIPATION
     Dosage: 240 ml, ONCE
     Route: 048
     Dates: start: 20090326

REACTIONS (1)
  - Influenza like illness [Recovered/Resolved]
